FAERS Safety Report 10525590 (Version 1)
Quarter: 2014Q4

REPORT INFORMATION
  Report Type: Spontaneous
  Country: NG (occurrence: NG)
  Receive Date: 20141017
  Receipt Date: 20141017
  Transmission Date: 20150528
  Serious: Yes (Hospitalization)
  Sender: FDA-Public Use
  Company Number: ZA-ASTRAZENECA-2014SE74645

PATIENT
  Sex: Female

DRUGS (1)
  1. MERONEM [Suspect]
     Active Substance: MEROPENEM
     Route: 042

REACTIONS (2)
  - Body temperature increased [Recovering/Resolving]
  - Drug ineffective [Unknown]
